FAERS Safety Report 6638709-1 (Version None)
Quarter: 2010Q1

REPORT INFORMATION
  Report Type: 
  Country: None (occurrence: None)
  Receive Date: 20100316
  Receipt Date: 20100316
  Transmission Date: 20100710
  Serious: Yes (Other)
  Sender: FDA-Public Use
  Company Number: None

PATIENT
  Age: 8 Year
  Sex: Male
  Weight: 22.2263 kg

DRUGS (2)
  1. FLOVENT HFA [Suspect]
     Indication: ASTHMA
     Dosage: 2 PUFFS ONCE A DAY INHAL
     Dates: start: 20091215, end: 20100310
  2. FLOVENT HFA [Suspect]
     Indication: HYPERSENSITIVITY
     Dosage: 2 PUFFS ONCE A DAY INHAL
     Dates: start: 20091215, end: 20100310

REACTIONS (7)
  - ABNORMAL BEHAVIOUR [None]
  - AGGRESSION [None]
  - CONFUSIONAL STATE [None]
  - CRYING [None]
  - FRUSTRATION [None]
  - HEADACHE [None]
  - TRICHOTILLOMANIA [None]
